FAERS Safety Report 6997061-2 (Version None)
Quarter: 2010Q3

REPORT INFORMATION
  Report Type: 
  Country: None (occurrence: None)
  Receive Date: 20100918
  Receipt Date: 20090901
  Transmission Date: 20110219
  Serious: No
  Sender: FDA-Public Use
  Company Number: US-WYE-H10805109

PATIENT
  Sex: Female
  Weight: 79.45 kg

DRUGS (6)
  1. PRISTIQ [Suspect]
     Indication: DEPRESSION
     Dosage: 50 MG (FREQUENCY UNSPECIFIED)
     Route: 048
     Dates: start: 20090301
  2. PSEUDOEPHEDRINE HYDROCHLORIDE [Concomitant]
  3. ZYRTEC [Concomitant]
  4. BENADRYL [Concomitant]
  5. LEVOTHYROXINE SODIUM [Concomitant]
  6. HYDROCHLOROTHIAZIDE [Concomitant]

REACTIONS (1)
  - COGNITIVE DISORDER [None]
